FAERS Safety Report 15838546 (Version 1)
Quarter: 2019Q1

REPORT INFORMATION
  Report Type: Spontaneous
  Country: US (occurrence: US)
  Receive Date: 20190117
  Receipt Date: 20190117
  Transmission Date: 20190417
  Serious: Yes (Hospitalization, Other)
  Sender: FDA-Public Use
  Company Number: US-ASTRAZENECA-2018SF13639

PATIENT
  Age: 22546 Day
  Sex: Male

DRUGS (24)
  1. OFIRMEV [Concomitant]
     Active Substance: ACETAMINOPHEN
     Dosage: (INJECTION) SOLUTION 1000MG 100 ML
     Dates: start: 20141209
  2. PHENERGAN [Concomitant]
     Active Substance: PROMETHAZINE HYDROCHLORIDE
     Route: 030
     Dates: start: 20141206
  3. TYLENOL [Concomitant]
     Active Substance: ACETAMINOPHEN
     Dosage: 650.0MG EVERY 4 - 6 HOURS
     Route: 048
     Dates: start: 20141206, end: 20141211
  4. AMBIEN [Concomitant]
     Active Substance: ZOLPIDEM TARTRATE
     Dosage: 10.0MG UNKNOWN
     Dates: start: 20141209, end: 20141211
  5. DILAUDID [Concomitant]
     Active Substance: HYDROMORPHONE HYDROCHLORIDE
     Dosage: 0.2MG UNKNOWN
     Route: 042
     Dates: start: 20141206
  6. ZOLOFT [Concomitant]
     Active Substance: SERTRALINE HYDROCHLORIDE
     Route: 048
     Dates: start: 20141206, end: 20141211
  7. NEXIUM [Suspect]
     Active Substance: ESOMEPRAZOLE MAGNESIUM
     Dosage: 40.0MG UNKNOWN
     Route: 048
     Dates: start: 20140106
  8. MORPHINE [Concomitant]
     Active Substance: MORPHINE
     Dosage: 2.0MG UNKNOWN
     Route: 042
     Dates: start: 20141206
  9. PROTONIX [Concomitant]
     Active Substance: PANTOPRAZOLE SODIUM
     Route: 048
     Dates: start: 20141206
  10. ZOLPIDEM [Concomitant]
     Active Substance: ZOLPIDEM\ZOLPIDEM TARTRATE
     Dosage: 10.0MG UNKNOWN
     Dates: start: 20170925
  11. LORTAB [Concomitant]
     Active Substance: ACETAMINOPHEN\HYDROCODONE BITARTRATE
     Dosage: 7.5/325 MG 1 EVERY 4 HOURS
  12. PEPCID [Concomitant]
     Active Substance: FAMOTIDINE
     Dosage: 20MG/2ML, ONCE
     Dates: start: 20141206
  13. NALOXONE [Concomitant]
     Active Substance: NALOXONE
  14. VERSED [Concomitant]
     Active Substance: MIDAZOLAM HYDROCHLORIDE
     Dosage: 1-4 MG
     Route: 042
     Dates: start: 20141206
  15. APRESOLINE HYDROCHLORIDE [Concomitant]
     Active Substance: HYDRALAZINE HYDROCHLORIDE
     Dosage: 10.0MG UNKNOWN
     Route: 042
     Dates: start: 20141206
  16. VALIUM [Concomitant]
     Active Substance: DIAZEPAM
     Dosage: 1.25MG UNKNOWN
     Route: 042
     Dates: start: 20141206
  17. OMEPRAZOLE. [Concomitant]
     Active Substance: OMEPRAZOLE
     Dosage: 20.0MG UNKNOWN
     Dates: start: 20171024
  18. NEXIUM [Suspect]
     Active Substance: ESOMEPRAZOLE MAGNESIUM
     Route: 048
  19. ZOFRAN [Concomitant]
     Active Substance: ONDANSETRON HYDROCHLORIDE
     Dates: start: 20141206
  20. TRAMADOL. [Concomitant]
     Active Substance: TRAMADOL
     Dosage: 50.0MG UNKNOWN
     Dates: start: 20170721
  21. ANCEF [Concomitant]
     Active Substance: CEFAZOLIN SODIUM
     Dosage: 1 GM IN STERILE WATER, 10 ML, INJECTION
     Dates: start: 20141209
  22. DEMEROL [Concomitant]
     Active Substance: MEPERIDINE HYDROCHLORIDE
     Dosage: 12.5MG AS REQUIRED
     Dates: start: 20141206
  23. NEXIUM [Suspect]
     Active Substance: ESOMEPRAZOLE MAGNESIUM
     Dosage: GENERIC40.0MG UNKNOWN
     Route: 065
     Dates: start: 20141001
  24. LIDOCAIN [Concomitant]
     Active Substance: LIDOCAINE
     Dosage: 10.0MG/ML UNKNOWN
     Dates: start: 20141206

REACTIONS (6)
  - Gastrooesophageal reflux disease [Unknown]
  - Renal cancer [Unknown]
  - Renal cell carcinoma [Unknown]
  - Renal impairment [Unknown]
  - Chronic kidney disease [Unknown]
  - Acute kidney injury [Unknown]

NARRATIVE: CASE EVENT DATE: 20141211
